FAERS Safety Report 24631458 (Version 1)
Quarter: 2024Q4

REPORT INFORMATION
  Report Type: Spontaneous
  Country: US (occurrence: None)
  Receive Date: 20241118
  Receipt Date: 20241118
  Transmission Date: 20250114
  Serious: Yes (Hospitalization, Other)
  Sender: Public
  Company Number: None

PATIENT
  Age: 33 Year
  Sex: Female
  Weight: 124.2 kg

DRUGS (1)
  1. NEXPLANON [Suspect]
     Active Substance: ETONOGESTREL
     Indication: Contraception
     Dosage: OTHER FREQUENCY : N/A;?
     Route: 061

REACTIONS (3)
  - Maternal exposure during pregnancy [None]
  - Ectopic pregnancy [None]
  - Pregnancy with implant contraceptive [None]

NARRATIVE: CASE EVENT DATE: 20241110
